FAERS Safety Report 7813961-5 (Version None)
Quarter: 2011Q4

REPORT INFORMATION
  Report Type: 
  Country: None (occurrence: None)
  Receive Date: 20111014
  Receipt Date: 20111010
  Transmission Date: 20120403
  Serious: Yes (Other)
  Sender: FDA-Public Use
  Company Number: US-PFIZER INC-2011113024

PATIENT
  Sex: Female
  Weight: 23 kg

DRUGS (8)
  1. MONTELUKAST SODIUM [Concomitant]
     Dosage: 5 MG, UNK
  2. ADVAIR DISKUS 100/50 [Concomitant]
     Dosage: UNK
  3. FLONASE [Concomitant]
     Dosage: 0.05 %, UNK
  4. ZYRTEC [Concomitant]
     Dosage: 5 MG, UNK
  5. VENTOLIN [Concomitant]
     Dosage: UNK
  6. FLOVENT [Concomitant]
     Dosage: 44 UG, UNK
  7. MULTI-VITAMINS [Concomitant]
     Dosage: UNK
  8. GENOTROPIN [Suspect]
     Dosage: 1.2 MG, 6 DAYS A WEEK
     Route: 058

REACTIONS (2)
  - HEADACHE [None]
  - SINUSITIS [None]
